FAERS Safety Report 16320167 (Version 3)
Quarter: 2019Q2

REPORT INFORMATION
  Report Type: Spontaneous
  Country: DE (occurrence: DE)
  Receive Date: 20190516
  Receipt Date: 20190612
  Transmission Date: 20190711
  Serious: Yes (Death, Hospitalization)
  Sender: FDA-Public Use
  Company Number: DE-009507513-1905DEU001897

PATIENT
  Age: 10 Month
  Sex: Female
  Weight: 9 kg

DRUGS (3)
  1. VARILRIX [Suspect]
     Active Substance: VARICELLA-ZOSTER VIRUS STRAIN OKA/MERCK LIVE ANTIGEN
     Indication: IMMUNISATION
     Dosage: UNK
     Route: 058
     Dates: start: 20190417
  2. M-M-RVAXPRO [Suspect]
     Active Substance: MEASLES VIRUS STRAIN ENDERS^ ATTENUATED EDMONSTON LIVE ANTIGEN\MUMPS VIRUS STRAIN B LEVEL JERYL LYNN LIVE ANTIGEN\RUBELLA VIRUS STRAIN WISTAR RA 27/3 LIVE ANTIGEN
     Indication: IMMUNISATION
     Route: 030
     Dates: start: 20190417
  3. STERILE DILUENT (WATER) [Suspect]
     Active Substance: WATER
     Dosage: UNK
     Dates: start: 20190417

REACTIONS (5)
  - Death [Fatal]
  - Diarrhoea [Unknown]
  - Vomiting [Unknown]
  - Respiratory tract infection [Fatal]
  - Pyrexia [Unknown]

NARRATIVE: CASE EVENT DATE: 20190419
